FAERS Safety Report 7585743-3 (Version None)
Quarter: 2011Q3

REPORT INFORMATION
  Report Type: 
  Country: None (occurrence: None)
  Receive Date: 20110701
  Receipt Date: 20110622
  Transmission Date: 20111222
  Serious: Yes (Hospitalization)
  Sender: FDA-Public Use
  Company Number: US-SANOFI-AVENTIS-2011SA041485

PATIENT
  Age: 58 Year
  Sex: Female

DRUGS (6)
  1. DAYPRO [Suspect]
     Route: 048
     Dates: start: 20010901
  2. FLONASE [Concomitant]
  3. LOVENOX [Suspect]
     Route: 058
     Dates: start: 19990101
  4. ACIPHEX [Concomitant]
  5. LASIX [Concomitant]
  6. PERCOCET [Concomitant]
     Dosage: 2 AS NEEDED

REACTIONS (4)
  - CHEST PAIN [None]
  - DYSPNOEA [None]
  - GASTROOESOPHAGEAL REFLUX DISEASE [None]
  - NAUSEA [None]
